FAERS Safety Report 19261741 (Version 2)
Quarter: 2021Q2

REPORT INFORMATION
  Report Type: Spontaneous
  Country: UA (occurrence: UA)
  Receive Date: 20210515
  Receipt Date: 20210526
  Transmission Date: 20210717
  Serious: Yes (Death, Hospitalization)
  Sender: FDA-Public Use
  Company Number: UA-JNJFOC-20210524625

PATIENT
  Age: 66 Year
  Sex: Female

DRUGS (1)
  1. XARELTO [Suspect]
     Active Substance: RIVAROXABAN
     Indication: THROMBOSIS PROPHYLAXIS
     Dosage: 20 MG
     Route: 048
     Dates: start: 20210308, end: 20210320

REACTIONS (20)
  - Haemorrhagic pneumonia [Unknown]
  - Acute respiratory failure [Unknown]
  - Pneumonia [Unknown]
  - Cardiac failure [Unknown]
  - Aortic embolus [Unknown]
  - Peripheral embolism [Unknown]
  - Pleural effusion [Unknown]
  - Pneumonia viral [Unknown]
  - Angiopathy [Unknown]
  - Asthenia [Unknown]
  - Abdominal pain [Unknown]
  - Traumatic lung injury [Unknown]
  - Embolism [Fatal]
  - Ascites [Unknown]
  - Dyspnoea at rest [Unknown]
  - Drug ineffective [Unknown]
  - Respiratory failure [Fatal]
  - Pulmonary embolism [Unknown]
  - Diarrhoea [Unknown]
  - Pulmonary oedema [Unknown]

NARRATIVE: CASE EVENT DATE: 20210317
